FAERS Safety Report 14735630 (Version 2)
Quarter: 2018Q2

REPORT INFORMATION
  Report Type: Spontaneous
  Country: US (occurrence: US)
  Receive Date: 20180409
  Receipt Date: 20180622
  Transmission Date: 20180711
  Serious: Yes (Other)
  Sender: FDA-Public Use
  Company Number: US-009507513-1804USA002496

PATIENT
  Age: 70 Year
  Sex: Female

DRUGS (3)
  1. KEYTRUDA [Suspect]
     Active Substance: PEMBROLIZUMAB
     Indication: NON-SMALL CELL LUNG CANCER
     Dosage: UNK, Q3W
     Route: 042
     Dates: start: 20170823
  2. ALIMTA [Concomitant]
     Active Substance: PEMETREXED DISODIUM
     Dosage: UNK
     Dates: start: 20170823
  3. XGEVA [Concomitant]
     Active Substance: DENOSUMAB

REACTIONS (5)
  - Rash [Recovering/Resolving]
  - Fatigue [Recovering/Resolving]
  - Pulmonary embolism [Recovering/Resolving]
  - Impaired healing [Recovering/Resolving]
  - Weight decreased [Recovering/Resolving]
